FAERS Safety Report 6610299-9 (Version None)
Quarter: 2010Q1

REPORT INFORMATION
  Report Type: 
  Country: None (occurrence: None)
  Receive Date: 20100302
  Receipt Date: 20090318
  Transmission Date: 20100710
  Serious: No
  Sender: FDA-Public Use
  Company Number: US-TYCO HEALTHCARE/MALLINCKRODT-T200900729

PATIENT

DRUGS (2)
  1. TECHNESCAN [Suspect]
     Dosage: UNK
     Route: 042
     Dates: start: 20090318, end: 20090318
  2. ULTRA-TECHNEKOW [Suspect]
     Dosage: UNK
     Route: 042
     Dates: start: 20090318, end: 20090318

REACTIONS (2)
  - DIARRHOEA [None]
  - NAUSEA [None]
